FAERS Safety Report 6590734-5 (Version None)
Quarter: 2010Q1

REPORT INFORMATION
  Report Type: 
  Country: None (occurrence: None)
  Receive Date: 20100212
  Receipt Date: 20100125
  Transmission Date: 20100710
  Serious: Yes (Other)
  Sender: FDA-Public Use
  Company Number: 230834J10USA

PATIENT
  Age: 28 Year
  Sex: Female

DRUGS (1)
  1. REBIF [Suspect]
     Indication: MULTIPLE SCLEROSIS
     Dosage: NOT RESPONED, NOT RESPONED, NOT
     Dates: start: 20091211, end: 20100101

REACTIONS (2)
  - LOSS OF CONSCIOUSNESS [None]
  - PUPILLARY DISORDER [None]
